FAERS Safety Report 4516945-8 (Version None)
Quarter: 2004Q4

REPORT INFORMATION
  Report Type: 
  Country: None (occurrence: None)
  Receive Date: 20041029
  Receipt Date: 20040921
  Transmission Date: 20050328
  Serious: No
  Sender: FDA-Public Use
  Company Number: 2004-120526-NL

PATIENT
  Age: 51 Year
  Sex: Female
  Weight: 72.2 kg

DRUGS (2)
  1. NUVARING [Suspect]
     Indication: MENSTRUATION IRREGULAR
     Dosage: DF DAILY VAGINAL
     Route: 067
     Dates: start: 20040712, end: 20040919
  2. CALCIUM MAGNESIUM ZINC [Concomitant]

REACTIONS (3)
  - MEDICAL DEVICE DISCOMFORT [None]
  - METRORRHAGIA [None]
  - VAGINAL CONTRACEPTIVE DEVICE EXPELLED [None]
